FAERS Safety Report 8766529 (Version 1)
Quarter: 2012Q4

REPORT INFORMATION
  Report Type: 
  Country: US (occurrence: US)
  Receive Date: 20120905
  Receipt Date: 20120905
  Transmission Date: 20130627
  Serious: Yes (Hospitalization)
  Sender: FDA-Public Use
  Company Number: US-ASTRAZENECA-2010SE16414

PATIENT
  Age: 50 Year
  Sex: Female

DRUGS (2)
  1. ACCOLATE [Suspect]
     Route: 048
  2. PREDNISONE [Concomitant]

REACTIONS (3)
  - Adverse event [Unknown]
  - Myopathy [Unknown]
  - Muscular weakness [Unknown]
